FAERS Safety Report 7782039-1 (Version None)
Quarter: 2011Q3

REPORT INFORMATION
  Report Type: 
  Country: None (occurrence: None)
  Receive Date: 20110927
  Receipt Date: 20110916
  Transmission Date: 20111222
  Serious: Yes (Hospitalization, Other)
  Sender: FDA-Public Use
  Company Number: PHHY2011TR80687

PATIENT
  Sex: Male
  Weight: 78 kg

DRUGS (2)
  1. GLEEVEC [Suspect]
     Indication: GASTROINTESTINAL STROMAL TUMOUR
     Dosage: 400 MG, UNK
     Route: 048
     Dates: start: 20110613
  2. NORVASC [Concomitant]
     Indication: HYPERTENSION
     Dosage: 10 MG, UNK

REACTIONS (15)
  - GASTROINTESTINAL HYPOMOTILITY [None]
  - INTESTINAL OBSTRUCTION [None]
  - LIPASE DECREASED [None]
  - EOSINOPHIL COUNT INCREASED [None]
  - NAUSEA [None]
  - VOMITING [None]
  - HAEMATOCRIT DECREASED [None]
  - SUBILEUS [None]
  - ABDOMINAL PAIN UPPER [None]
  - RED CELL DISTRIBUTION WIDTH INCREASED [None]
  - ILEUS [None]
  - BLOOD ALBUMIN DECREASED [None]
  - ABDOMINAL DISCOMFORT [None]
  - BLOOD GLUCOSE INCREASED [None]
  - PROTEIN TOTAL DECREASED [None]
